FAERS Safety Report 18946643 (Version 3)
Quarter: 2021Q2

REPORT INFORMATION
  Report Type: Report from Study
  Country: US (occurrence: US)
  Receive Date: 20210226
  Receipt Date: 20210508
  Transmission Date: 20210717
  Serious: Yes (Hospitalization, Other)
  Sender: FDA-Public Use
  Company Number: US-JNJFOC-20210234875

PATIENT
  Age: 78 Year
  Sex: Female
  Weight: 134.1 kg

DRUGS (4)
  1. UPTRAVI [Suspect]
     Active Substance: SELEXIPAG
     Indication: PULMONARY ARTERIAL HYPERTENSION
     Route: 048
  2. MACITENTAN [Suspect]
     Active Substance: MACITENTAN
     Indication: PULMONARY ARTERIAL HYPERTENSION
     Route: 048
     Dates: start: 20191224
  3. WARFARIN [Concomitant]
     Active Substance: WARFARIN
  4. SILDENAFIL CITRATE. [Concomitant]
     Active Substance: SILDENAFIL CITRATE

REACTIONS (4)
  - Diverticulitis [Unknown]
  - Weight decreased [Unknown]
  - Sepsis [Recovering/Resolving]
  - Intestinal cyst [Unknown]

NARRATIVE: CASE EVENT DATE: 20201228
